FAERS Safety Report 16535159 (Version 1)
Quarter: 2019Q3

REPORT INFORMATION
  Report Type: Spontaneous
  Country: MX (occurrence: MX)
  Receive Date: 20190705
  Receipt Date: 20190705
  Transmission Date: 20191004
  Serious: Yes (Other)
  Sender: FDA-Public Use
  Company Number: MX-MICRO LABS LIMITED-ML2019-01529

PATIENT
  Age: 15 Year
  Sex: Male

DRUGS (1)
  1. DIPHENHYDRAMINE HYDROCHLORIDE. [Suspect]
     Active Substance: DIPHENHYDRAMINE HYDROCHLORIDE
     Route: 048

REACTIONS (5)
  - Drug abuse [Unknown]
  - Palpitations [Recovering/Resolving]
  - Anxiety [Recovering/Resolving]
  - Myoclonus [Recovering/Resolving]
  - Delirium [Not Recovered/Not Resolved]
